FAERS Safety Report 6456386-X (Version None)
Quarter: 2009Q4

REPORT INFORMATION
  Report Type: 
  Country: None (occurrence: None)
  Receive Date: 20091125
  Receipt Date: 20091111
  Transmission Date: 20100525
  Serious: Yes (Hospitalization, Other)
  Sender: FDA-Public Use
  Company Number: PHHY2009TW43143

PATIENT
  Sex: Male
  Weight: 82 kg

DRUGS (1)
  1. DIOVAN [Suspect]
     Dosage: 80 MG
     Route: 048
     Dates: start: 20090713, end: 20090926

REACTIONS (13)
  - ABSCESS [None]
  - BLOOD CREATININE INCREASED [None]
  - BLOOD POTASSIUM INCREASED [None]
  - C-REACTIVE PROTEIN [None]
  - CELLULITIS [None]
  - HAEMOGLOBIN DECREASED [None]
  - HYPERGLYCAEMIA [None]
  - JOINT SWELLING [None]
  - NEUTROPHIL COUNT INCREASED [None]
  - SEPTIC SHOCK [None]
  - SKIN ULCER [None]
  - URINARY TRACT INFECTION [None]
  - WHITE BLOOD CELL COUNT INCREASED [None]
